FAERS Safety Report 13296396 (Version 1)
Quarter: 2017Q1

REPORT INFORMATION
  Report Type: Spontaneous
  Country: US (occurrence: US)
  Receive Date: 20170305
  Receipt Date: 20170305
  Transmission Date: 20170428
  Serious: No
  Sender: FDA-Public Use
  Company Number: US-009507513-1702USA011296

PATIENT
  Age: 17 Year
  Sex: Female
  Weight: 62.59 kg

DRUGS (2)
  1. NEXPLANON [Suspect]
     Active Substance: ETONOGESTREL
     Dosage: A NEW ROD, UNK
     Route: 059
     Dates: start: 20170125
  2. NEXPLANON [Suspect]
     Active Substance: ETONOGESTREL
     Dosage: A ROD IN THE ARM, UNK
     Route: 059
     Dates: start: 20170118, end: 20170125

REACTIONS (2)
  - Device expulsion [Recovered/Resolved]
  - No adverse event [Unknown]

NARRATIVE: CASE EVENT DATE: 20170125
